FAERS Safety Report 14927424 (Version 2)
Quarter: 2019Q3

REPORT INFORMATION
  Report Type: Spontaneous
  Country: US (occurrence: US)
  Receive Date: 20180523
  Receipt Date: 20190702
  Transmission Date: 20191004
  Serious: No
  Sender: FDA-Public Use
  Company Number: US-PFIZER INC-2018211220

PATIENT
  Age: 63 Year
  Sex: Female

DRUGS (2)
  1. ZITHROMAX [Suspect]
     Active Substance: AZITHROMYCIN DIHYDRATE
     Dosage: UNK
  2. NOVOCAINE [Suspect]
     Active Substance: PROCAINE
     Dosage: UNK

REACTIONS (1)
  - Drug hypersensitivity [Unknown]
